FAERS Safety Report 4492580-5 (Version None)
Quarter: 2004Q4

REPORT INFORMATION
  Report Type: 
  Country: None (occurrence: None)
  Receive Date: 20041029
  Receipt Date: 20041021
  Transmission Date: 20050328
  Serious: Yes (Disabling)
  Sender: FDA-Public Use
  Company Number: 2004CG02144

PATIENT
  Age: 61 Year
  Sex: Female

DRUGS (1)
  1. FELODIPINE [Suspect]
     Indication: HYPERTENSION
     Dates: start: 20020101

REACTIONS (2)
  - BLINDNESS UNILATERAL [None]
  - EYE OEDEMA [None]
